FAERS Safety Report 20818652 (Version 1)
Quarter: 2022Q2

REPORT INFORMATION
  Report Type: Report from Study
  Country: US (occurrence: US)
  Receive Date: 20220512
  Receipt Date: 20220512
  Transmission Date: 20220720
  Serious: Yes (Hospitalization)
  Sender: FDA-Public Use
  Company Number: US-BAYER-2022A067765

PATIENT
  Age: 55 Year
  Sex: Male

DRUGS (1)
  1. STIVARGA [Suspect]
     Active Substance: REGORAFENIB
     Indication: Appendix cancer
     Dosage: 80 MG, QD FOR 21 DAYS, FOLLOWED BY 7 DAYS OFF
     Route: 048

REACTIONS (1)
  - Hospitalisation [None]
